FAERS Safety Report 15974605 (Version 3)
Quarter: 2020Q1

REPORT INFORMATION
  Report Type: Report from Study
  Country: US (occurrence: US)
  Receive Date: 20190218
  Receipt Date: 20200224
  Transmission Date: 20200409
  Serious: Yes (Other)
  Sender: FDA-Public Use
  Company Number: US-SA-2019SA043932

PATIENT
  Age: 68 Year
  Sex: Female

DRUGS (2)
  1. DUPILUMAB [Suspect]
     Active Substance: DUPILUMAB
     Indication: DERMATITIS ATOPIC
     Dosage: 300 MG, QOW
     Route: 058
     Dates: start: 20181025
  2. DUPILUMAB [Suspect]
     Active Substance: DUPILUMAB
     Indication: ECZEMA

REACTIONS (7)
  - Cellulitis staphylococcal [Recovered/Resolved]
  - Blister [Recovered/Resolved]
  - Fatigue [Unknown]
  - Influenza [Unknown]
  - Chills [Unknown]
  - Lethargy [Unknown]
  - Pain [Unknown]
